FAERS Safety Report 8373156-6 (Version None)
Quarter: 2012Q2

REPORT INFORMATION
  Report Type: 
  Country: None (occurrence: None)
  Receive Date: 20120521
  Receipt Date: 20120509
  Transmission Date: 20120825
  Serious: Yes (Disabling, Other)
  Sender: FDA-Public Use
  Company Number: US-ASTRAZENECA-2011SE76220

PATIENT
  Age: 39 Year
  Sex: Female
  Weight: 61.2 kg

DRUGS (3)
  1. MERREM [Suspect]
     Route: 042
     Dates: end: 20120101
  2. MERREM [Suspect]
     Indication: BACTERIAL INFECTION
     Route: 042
     Dates: start: 20111019
  3. MERREM [Suspect]
     Route: 042

REACTIONS (6)
  - MALAISE [None]
  - PALPITATIONS [None]
  - BALANCE DISORDER [None]
  - POSTURAL ORTHOSTATIC TACHYCARDIA SYNDROME [None]
  - HEADACHE [None]
  - HEART RATE INCREASED [None]
